FAERS Safety Report 5753871-0 (Version None)
Quarter: 2008Q2

REPORT INFORMATION
  Report Type: 
  Country: None (occurrence: None)
  Receive Date: 20080530
  Receipt Date: 20080522
  Transmission Date: 20081010
  Serious: Yes (Hospitalization)
  Sender: FDA-Public Use
  Company Number: A0727758A

PATIENT
  Age: 54 Year
  Sex: Female

DRUGS (2)
  1. LAPATINIB [Suspect]
     Dosage: 1250MG PER DAY
     Route: 048
  2. CAPECITABINE [Suspect]
     Dosage: 2000MGM2 PER DAY
     Route: 048

REACTIONS (4)
  - EMPYEMA [None]
  - HYPONATRAEMIA [None]
  - PLEURAL INFECTION [None]
  - PNEUMONIA [None]
